FAERS Safety Report 6621003-2 (Version None)
Quarter: 2010Q1

REPORT INFORMATION
  Report Type: 
  Country: None (occurrence: None)
  Receive Date: 20100309
  Receipt Date: 20100225
  Transmission Date: 20100710
  Serious: Yes (Hospitalization, Other)
  Sender: FDA-Public Use
  Company Number: PHHY2010FR02151

PATIENT
  Sex: Male
  Weight: 70 kg

DRUGS (7)
  1. GLEEVEC [Suspect]
     Indication: CHRONIC MYELOID LEUKAEMIA
     Dosage: 100 MG, TID
     Route: 048
     Dates: start: 20040101
  2. GLEEVEC [Suspect]
     Dosage: 100 MG, TID
     Route: 048
     Dates: start: 20091216
  3. ATARAX [Concomitant]
     Dosage: 25 MG, QD
     Route: 048
  4. DIFFU K [Concomitant]
  5. EFEXOR LP [Concomitant]
     Dosage: 37.5 MG, QD
     Route: 048
     Dates: start: 20100101
  6. DOLIPRANE [Concomitant]
  7. LASILIX [Concomitant]
     Dosage: 40 MG DAILY
     Dates: start: 20090101

REACTIONS (4)
  - AUTONOMIC NERVOUS SYSTEM IMBALANCE [None]
  - BLOOD PRESSURE SYSTOLIC INCREASED [None]
  - HYPOTENSION [None]
  - SUBDURAL HAEMATOMA [None]
